FAERS Safety Report 22134909 (Version 2)
Quarter: 2023Q2

REPORT INFORMATION
  Report Type: Spontaneous
  Country: BR (occurrence: BR)
  Receive Date: 20230324
  Receipt Date: 20230406
  Transmission Date: 20230722
  Serious: Yes (Other)
  Sender: FDA-Public Use
  Company Number: BR-BoehringerIngelheim-2023-BI-226033

PATIENT
  Age: 52 Year
  Sex: Female
  Weight: 65 kg

DRUGS (5)
  1. GLYXAMBI [Suspect]
     Active Substance: EMPAGLIFLOZIN\LINAGLIPTIN
     Indication: Type 2 diabetes mellitus
     Dosage: AFTER BREAKFAST
     Route: 048
     Dates: start: 2019, end: 2019
  2. INDAPAMIDE [Concomitant]
     Active Substance: INDAPAMIDE
     Indication: Hypertension
     Route: 048
     Dates: start: 2015
  3. ROSUVASTATIN [Concomitant]
     Active Substance: ROSUVASTATIN
     Indication: Blood cholesterol increased
     Dosage: AT NIGHT
     Route: 048
     Dates: start: 2018
  4. Dual [Concomitant]
     Indication: Fibromyalgia
     Route: 048
     Dates: start: 2018
  5. LEVOTHYROXINE SODIUM [Concomitant]
     Active Substance: LEVOTHYROXINE SODIUM
     Indication: Thyroid disorder
     Route: 048
     Dates: start: 202208

REACTIONS (11)
  - Near death experience [Recovered/Resolved]
  - Thyroid cancer [Recovered/Resolved]
  - Malaise [Recovered/Resolved]
  - Head injury [Recovered/Resolved]
  - Sluggishness [Recovered/Resolved]
  - Feeling abnormal [Recovered/Resolved]
  - Palpitations [Recovered/Resolved]
  - Feeling abnormal [Recovered/Resolved]
  - Asthenia [Recovered/Resolved]
  - Brain fog [Recovered/Resolved]
  - Blood glucose increased [Not Recovered/Not Resolved]

NARRATIVE: CASE EVENT DATE: 20190101
